FAERS Safety Report 24532237 (Version 2)
Quarter: 2024Q4

REPORT INFORMATION
  Report Type: Spontaneous
  Country: BE (occurrence: BE)
  Receive Date: 20241022
  Receipt Date: 20241128
  Transmission Date: 20250114
  Serious: Yes (Death, Other)
  Sender: CSL BEHRING
  Company Number: BE-BEH-2024182344

PATIENT
  Age: 90 Year
  Sex: Female

DRUGS (2)
  1. HIZENTRA [Suspect]
     Active Substance: HUMAN IMMUNOGLOBULIN G
     Indication: Primary immunodeficiency syndrome
     Dosage: 8 G, QW
     Route: 058
  2. HIZENTRA [Suspect]
     Active Substance: HUMAN IMMUNOGLOBULIN G
     Indication: Secondary immunodeficiency
     Dosage: ON A WEEKLY BASIS, EVERY FRIDAY
     Route: 065
     Dates: end: 20241011

REACTIONS (1)
  - Death [Fatal]

NARRATIVE: CASE EVENT DATE: 20241012
